FAERS Safety Report 24681530 (Version 3)
Quarter: 2025Q3

REPORT INFORMATION
  Report Type: Report from Study
  Country: US (occurrence: US)
  Receive Date: 20241130
  Receipt Date: 20250803
  Transmission Date: 20251021
  Serious: Yes (Death, Other)
  Sender: ALEXION PHARMACEUTICALS
  Company Number: US-AstraZeneca-CH-00756586A

PATIENT
  Sex: Male
  Weight: 63.492 kg

DRUGS (1)
  1. SODIUM ZIRCONIUM CYCLOSILICATE [Suspect]
     Active Substance: SODIUM ZIRCONIUM CYCLOSILICATE
     Dosage: 10 MILLIGRAM, QD
     Route: 065

REACTIONS (2)
  - Hypervolaemia [Fatal]
  - Pneumonia [Fatal]
